FAERS Safety Report 8437589-1 (Version None)
Quarter: 2012Q2

REPORT INFORMATION
  Report Type: 
  Country: None (occurrence: None)
  Receive Date: 20120614
  Receipt Date: 20120417
  Transmission Date: 20120825
  Serious: No
  Sender: FDA-Public Use
  Company Number: US-AMGEN-USASP2012024214

PATIENT
  Age: 76 Year
  Sex: Female

DRUGS (5)
  1. WARFARIN SODIUM [Concomitant]
     Dosage: UNK
  2. PROLIA [Suspect]
     Indication: OSTEOPOROSIS POSTMENOPAUSAL
     Dosage: 60 MG, Q6MO
     Dates: start: 20120217
  3. CALCIUM [Concomitant]
  4. LOSARTAN POTASSIUM [Concomitant]
  5. SIMVASTATIN [Concomitant]

REACTIONS (3)
  - VARICOSE VEIN [None]
  - GAIT DISTURBANCE [None]
  - PAIN IN EXTREMITY [None]
